FAERS Safety Report 8410802 (Version 2)
Quarter: 2012Q4

REPORT INFORMATION
  Report Type: Spontaneous
  Country: US (occurrence: None)
  Receive Date: 20111227
  Receipt Date: 20120426
  Transmission Date: 20130627
  Serious: Yes (Other)
  Sender: FDA-Public Use
  Company Number: PHEH2011US03581

PATIENT
  Age: 34 Year
  Sex: Female
  Weight: 85 kg

DRUGS (9)
  1. GILENYA [Suspect]
     Indication: MULTIPLE SCLEROSIS
     Route: 048
     Dates: start: 20110830, end: 20110928
  2. GILENYA [Suspect]
     Indication: MULTIPLE SCLEROSIS
     Route: 048
  3. BACLOFEN [Concomitant]
  4. TOPAMAX (TOPIRAMATE) [Concomitant]
  5. LOESTRIN (ETHINYLESTRADIOL, NORETHISTERONE ACETATE) [Concomitant]
  6. VALTREX (VALACICLOVIR HYDROCHLORIDE) [Concomitant]
  7. TIZANIDINE [Concomitant]
  8. OXYCODONE [Concomitant]
  9. IMMUNOSUPPRESSANTS (NO INGREDIENTS/SUBSTANCES) [Concomitant]

REACTIONS (6)
  - Feeling cold [None]
  - Palpitations [None]
  - Fatigue [None]
  - Lymphocyte count decreased [None]
  - Lymphopenia [None]
  - Fungal infection [None]
